FAERS Safety Report 9065248 (Version 1)
Quarter: 2013Q1

REPORT INFORMATION
  Report Type: Spontaneous
  Country: US (occurrence: US)
  Receive Date: 20130214
  Receipt Date: 20130214
  Transmission Date: 20140127
  Serious: No
  Sender: FDA-Public Use
  Company Number: US-PFIZER INC-2013051517

PATIENT
  Sex: Female

DRUGS (3)
  1. FLECTOR [Suspect]
     Indication: TENDONITIS
     Dosage: UNK
  2. MOBIC [Suspect]
     Dosage: UNK
  3. LIPITOR [Concomitant]
     Dosage: 20 MG, UNK

REACTIONS (2)
  - Muscle spasms [Unknown]
  - Fatigue [Unknown]
